FAERS Safety Report 4603787-8 (Version None)
Quarter: 2005Q1

REPORT INFORMATION
  Report Type: 
  Country: None (occurrence: None)
  Receive Date: 20050308
  Receipt Date: 20050228
  Transmission Date: 20050727
  Serious: Yes (Hospitalization)
  Sender: FDA-Public Use
  Company Number: 2005037997

PATIENT
  Sex: Female

DRUGS (2)
  1. CELEBREX [Suspect]
     Indication: ILL-DEFINED DISORDER
     Dosage: ORAL
     Route: 048
  2. ROFECOXIB [Suspect]
     Indication: ILL-DEFINED DISORDER

REACTIONS (2)
  - BLOOD CHOLESTEROL INCREASED [None]
  - MALAISE [None]
